FAERS Safety Report 15827813 (Version 2)
Quarter: 2019Q1

REPORT INFORMATION
  Report Type: Spontaneous
  Country: US (occurrence: US)
  Receive Date: 20190115
  Receipt Date: 20190319
  Transmission Date: 20190417
  Serious: Yes (Hospitalization)
  Sender: FDA-Public Use
  Company Number: US-NOVOPROD-641229

PATIENT
  Age: 15 Year
  Sex: Male
  Weight: 59.6 kg

DRUGS (2)
  1. NORDITROPIN [Suspect]
     Active Substance: SOMATROPIN
     Indication: GROWTH HORMONE DEFICIENCY
     Dosage: 2.1 MG, QD AT HS
     Route: 058
     Dates: start: 20190106, end: 20190108
  2. NORDITROPIN [Suspect]
     Active Substance: SOMATROPIN
     Dosage: 2.1 MG, QD AT HS
     Route: 058
     Dates: start: 20190109

REACTIONS (1)
  - Gastroenteritis viral [Recovered/Resolved]

NARRATIVE: CASE EVENT DATE: 201901
